FAERS Safety Report 13638495 (Version 4)
Quarter: 2017Q3

REPORT INFORMATION
  Report Type: Spontaneous
  Country: KR (occurrence: KR)
  Receive Date: 20170609
  Receipt Date: 20170726
  Transmission Date: 20171127
  Serious: Yes (Other)
  Sender: FDA-Public Use
  Company Number: KR-009507513-1706KOR001801

PATIENT
  Age: 60 Year
  Sex: Male
  Weight: 81 kg

DRUGS (63)
  1. DEXAMETHASONE SODIUM PHOSPHATE. [Concomitant]
     Active Substance: DEXAMETHASONE SODIUM PHOSPHATE
     Dosage: 5 MG, ONCE; STRENGTH: 5MG/ML
     Route: 042
     Dates: start: 20170426, end: 20170426
  2. SOLONDO [Concomitant]
     Active Substance: PREDNISOLONE
     Dosage: 5 MG, BID
     Route: 048
     Dates: start: 20170313, end: 20170314
  3. TRANEXAMIC ACID. [Concomitant]
     Active Substance: TRANEXAMIC ACID
     Indication: HAEMORRHAGE PROPHYLAXIS
     Dosage: 500 MG, TID
     Route: 042
     Dates: start: 20170227, end: 20170303
  4. DEXAMETHASONE. [Concomitant]
     Active Substance: DEXAMETHASONE
     Dosage: 2 MG, BID
     Route: 048
     Dates: start: 20170518, end: 20170520
  5. MAGO [Concomitant]
     Indication: CONSTIPATION PROPHYLAXIS
     Dosage: 250 MG, BID
     Route: 048
     Dates: start: 20170224, end: 20170407
  6. CERADOLAN INJECTION [Concomitant]
     Indication: INFECTION PROPHYLAXIS
     Dosage: 1 G, BID
     Route: 042
     Dates: start: 20170227, end: 20170305
  7. KALIMATE [Concomitant]
     Active Substance: CALCIUM POLYSTYRENE SULFONATE
     Indication: HYPERKALAEMIA
     Dosage: 5 G, BID
     Route: 048
     Dates: start: 20170314, end: 20170318
  8. MUCOSTA [Concomitant]
     Active Substance: REBAMIPIDE
     Indication: PROPHYLAXIS AGAINST GASTROINTESTINAL ULCER
     Dosage: 100 MG, BID
     Route: 048
     Dates: start: 20170314, end: 20170317
  9. LASIX [Concomitant]
     Active Substance: FUROSEMIDE
     Indication: NEPHROPROTECTIVE THERAPY
     Dosage: 20 MG, ONCE; STRENGTH: 20MG/2ML
     Route: 042
     Dates: start: 20170314, end: 20170314
  10. LASIX [Concomitant]
     Active Substance: FUROSEMIDE
     Dosage: 20 MG, ONCE
     Route: 042
     Dates: start: 20170426, end: 20170426
  11. CISPLAN [Concomitant]
     Active Substance: CISPLATIN
     Dosage: 150 MG, ONCE; CYCLE 3; STRENGTH: 50MG/100ML
     Route: 042
     Dates: start: 20170426, end: 20170426
  12. CISPLAN [Concomitant]
     Active Substance: CISPLATIN
     Dosage: 120 MG, ONCE; CYCLE 4; STRENGTH: 50MG/100ML
     Route: 042
     Dates: start: 20170517, end: 20170517
  13. ALOXI [Concomitant]
     Active Substance: PALONOSETRON HYDROCHLORIDE
     Dosage: 0.25 MG, ONCE
     Route: 042
     Dates: start: 20170405, end: 20170405
  14. OLMESARTAN MEDOXOMIL. [Concomitant]
     Active Substance: OLMESARTAN MEDOXOMIL
     Indication: HYPERTENSION
     Dosage: 20 MG, QD
     Route: 048
     Dates: start: 20170218
  15. CALDOLOR [Concomitant]
     Active Substance: IBUPROFEN
     Indication: PAIN PROPHYLAXIS
     Dosage: 400 MG, TID
     Route: 042
     Dates: start: 20170227, end: 20170228
  16. MUTERAN [Concomitant]
     Active Substance: ACETYLCYSTEINE
     Indication: PROPHYLAXIS
     Dosage: 200 MG, TID; STRENGTH: 100MG/ML 3ML/A
     Route: 042
     Dates: start: 20170227, end: 20170228
  17. MUTERAN [Concomitant]
     Active Substance: ACETYLCYSTEINE
     Indication: PROPHYLAXIS
     Dosage: 200 MG, TID
     Route: 048
     Dates: start: 20170228, end: 20170307
  18. BOTROPASE [Concomitant]
     Active Substance: BATROXOBIN
     Indication: HAEMORRHAGE PROPHYLAXIS
     Dosage: 6 ML, QD
     Route: 042
     Dates: start: 20170227, end: 20170303
  19. FOLIC ACID. [Concomitant]
     Active Substance: FOLIC ACID
     Indication: VITAMIN SUPPLEMENTATION
     Dosage: 1 MG, QD
     Route: 048
     Dates: start: 20170307
  20. LASIX [Concomitant]
     Active Substance: FUROSEMIDE
     Indication: NEPHROPROTECTIVE THERAPY
     Dosage: 20 MG, ONCE
     Route: 042
     Dates: start: 20170405, end: 20170405
  21. MANNITOL. [Concomitant]
     Active Substance: MANNITOL
     Dosage: 100 ML, ONCE; 100 ML (BAG)
     Route: 042
     Dates: start: 20170517, end: 20170517
  22. SOLONDO [Concomitant]
     Active Substance: PREDNISOLONE
     Indication: PROPHYLAXIS
     Dosage: 10 MG, BID
     Route: 048
     Dates: start: 20170302, end: 20170313
  23. SOLONDO [Concomitant]
     Active Substance: PREDNISOLONE
     Dosage: 5 MG, BID
     Route: 048
     Dates: start: 20170318, end: 20170320
  24. RISPERDAL [Concomitant]
     Active Substance: RISPERIDONE
     Indication: DELIRIUM
     Dosage: 0.5 MG, ONCE
     Route: 048
     Dates: start: 20170309, end: 20170309
  25. EMEND (FOSAPREPITANT DIMEGLUMINE) [Suspect]
     Active Substance: FOSAPREPITANT DIMEGLUMINE
     Dosage: 150 MG, ONCE
     Route: 042
     Dates: start: 20170517, end: 20170517
  26. PEMETREXED DISODIUM [Concomitant]
     Active Substance: PEMETREXED DISODIUM
     Dosage: 1000 MG, ONCE; CYCLE 2
     Route: 042
     Dates: start: 20170405, end: 20170405
  27. DEXAMETHASONE SODIUM PHOSPHATE. [Concomitant]
     Active Substance: DEXAMETHASONE SODIUM PHOSPHATE
     Dosage: 5 MG, ONCE; STRENGTH: 5MG/ML
     Route: 042
     Dates: start: 20170517, end: 20170517
  28. AMODIPIN [Concomitant]
     Indication: HYPERTENSION
     Dosage: 5 MG, QD
     Route: 048
     Dates: start: 20170218
  29. STOGAR [Concomitant]
     Active Substance: LAFUTIDINE
     Indication: PROPHYLAXIS AGAINST GASTROINTESTINAL ULCER
     Dosage: 10 MG, BID
     Route: 048
     Dates: start: 20170219, end: 20170407
  30. SYNTHROID [Concomitant]
     Active Substance: LEVOTHYROXINE SODIUM
     Indication: HYPOTHYROIDISM
     Dosage: 0.1 MG, QD
     Route: 048
     Dates: start: 20170218
  31. NICOTINE. [Concomitant]
     Active Substance: NICOTINE
     Indication: SMOKING CESSATION THERAPY
     Dosage: 1 PAK, QD
     Route: 062
     Dates: start: 20170224
  32. CRESTOR [Concomitant]
     Active Substance: ROSUVASTATIN CALCIUM
     Indication: HYPERLIPIDAEMIA
     Dosage: 10 MG, QD
     Route: 048
     Dates: start: 20170306
  33. LASIX [Concomitant]
     Active Substance: FUROSEMIDE
     Dosage: 20 MG, ONCE
     Route: 042
     Dates: start: 20170517, end: 20170517
  34. MANNITOL. [Concomitant]
     Active Substance: MANNITOL
     Indication: NEPHROPROTECTIVE THERAPY
     Dosage: 100 MG, ONCE; 100 ML (BAG)
     Route: 042
     Dates: start: 20170314, end: 20170314
  35. MANNITOL. [Concomitant]
     Active Substance: MANNITOL
     Dosage: 100 ML, ONCE; 100 ML (BAG)
     Route: 042
     Dates: start: 20170405, end: 20170405
  36. EMEND (FOSAPREPITANT DIMEGLUMINE) [Suspect]
     Active Substance: FOSAPREPITANT DIMEGLUMINE
     Dosage: 150 MG, ONCE
     Route: 042
     Dates: start: 20170405, end: 20170405
  37. CISPLAN [Concomitant]
     Active Substance: CISPLATIN
     Dosage: 150 MG, ONCE; CYCLE 2; STRENGTH: 50MG/100ML
     Route: 042
     Dates: start: 20170405, end: 20170405
  38. DEXAMETHASONE SODIUM PHOSPHATE. [Concomitant]
     Active Substance: DEXAMETHASONE SODIUM PHOSPHATE
     Dosage: 5 MG, ONCE; STRENGTH: 5MG/ML
     Route: 042
     Dates: start: 20170405, end: 20170405
  39. ALOXI [Concomitant]
     Active Substance: PALONOSETRON HYDROCHLORIDE
     Indication: PROPHYLAXIS OF NAUSEA AND VOMITING
     Dosage: 0.25 MG, ONCE
     Route: 042
     Dates: start: 20170314, end: 20170314
  40. ALOXI [Concomitant]
     Active Substance: PALONOSETRON HYDROCHLORIDE
     Dosage: 0.25 MG, ONCE
     Route: 042
     Dates: start: 20170517, end: 20170517
  41. MYPOL [Concomitant]
     Indication: HEADACHE
     Dosage: 1 CAPSULE, QID
     Route: 048
     Dates: start: 20170301, end: 20170407
  42. EMEND (FOSAPREPITANT DIMEGLUMINE) [Suspect]
     Active Substance: FOSAPREPITANT DIMEGLUMINE
     Indication: PROPHYLAXIS OF NAUSEA AND VOMITING
     Dosage: 150 MG, ONCE
     Route: 042
     Dates: start: 20170314, end: 20170314
  43. PEMETREXED DISODIUM [Concomitant]
     Active Substance: PEMETREXED DISODIUM
     Indication: LUNG NEOPLASM MALIGNANT
     Dosage: 1000 MG, ONCE; CYCLE 1
     Route: 042
     Dates: start: 20170314, end: 20170314
  44. PEMETREXED DISODIUM [Concomitant]
     Active Substance: PEMETREXED DISODIUM
     Dosage: 1000 MG, ONCE; CYCLE 4
     Route: 042
     Dates: start: 20170517, end: 20170517
  45. DEXAMETHASONE SODIUM PHOSPHATE. [Concomitant]
     Active Substance: DEXAMETHASONE SODIUM PHOSPHATE
     Indication: PROPHYLAXIS
     Dosage: 5 MG, ONCE; STRENGTH: 5MG/ML
     Route: 042
     Dates: start: 20170227, end: 20170302
  46. ZOFRAN [Concomitant]
     Active Substance: ONDANSETRON HYDROCHLORIDE
     Indication: PROPHYLAXIS OF NAUSEA AND VOMITING
     Dosage: 8 MG, QD
     Route: 048
     Dates: start: 20170228, end: 20170306
  47. DEPAKINE [Concomitant]
     Active Substance: VALPROATE SODIUM
     Indication: CONVULSION PROPHYLAXIS
     Dosage: 300 MG, TID
     Route: 048
     Dates: start: 20170220
  48. CURAN [Concomitant]
     Active Substance: RANITIDINE HYDROCHLORIDE
     Indication: PROPHYLAXIS AGAINST GASTROINTESTINAL ULCER
     Dosage: 50 MG, TID; STRENGTH: 50MG/2ML
     Route: 042
     Dates: start: 20170227, end: 20170228
  49. PHYTONADIONE. [Concomitant]
     Active Substance: PHYTONADIONE
     Indication: HAEMORRHAGE PROPHYLAXIS
     Dosage: 10 MG, BID
     Route: 042
     Dates: start: 20170227, end: 20170303
  50. TAMIPOOL [Concomitant]
     Active Substance: VITAMINS
     Indication: PROPHYLAXIS
     Dosage: 1 VIAL, QD
     Route: 042
     Dates: start: 20170217, end: 20170305
  51. ACTINAMIDE [Concomitant]
     Indication: VITAMIN SUPPLEMENTATION
     Dosage: 1 MG, ONCE; STRENGTH: 1000MCG/2ML
     Route: 030
     Dates: start: 20170307, end: 20170307
  52. RISPERIDONE. [Concomitant]
     Active Substance: RISPERIDONE
     Indication: DELIRIUM
     Dosage: 0.5 MG, QD
     Route: 048
     Dates: start: 20170310, end: 20170407
  53. SEROQUEL [Concomitant]
     Active Substance: QUETIAPINE FUMARATE
     Indication: DELIRIUM
     Dosage: 12.5 MG, QD
     Route: 048
     Dates: start: 20170313
  54. EMEND (FOSAPREPITANT DIMEGLUMINE) [Suspect]
     Active Substance: FOSAPREPITANT DIMEGLUMINE
     Dosage: 150 MG, ONCE
     Route: 042
     Dates: start: 20170426, end: 20170426
  55. CISPLAN [Concomitant]
     Active Substance: CISPLATIN
     Indication: LUNG NEOPLASM MALIGNANT
     Dosage: 120 MG, ONCE; CYCLE 1; STRENGTH: 50MG/100ML
     Route: 042
     Dates: start: 20170314, end: 20170314
  56. PEMETREXED DISODIUM [Concomitant]
     Active Substance: PEMETREXED DISODIUM
     Dosage: 1000 MG, ONCE; CYCLE 3
     Route: 042
     Dates: start: 20170426, end: 20170426
  57. DEXAMETHASONE SODIUM PHOSPHATE. [Concomitant]
     Active Substance: DEXAMETHASONE SODIUM PHOSPHATE
     Indication: PROPHYLAXIS OF NAUSEA AND VOMITING
     Dosage: 5 MG, ONCE; STRENGTH: 5MG/ML
     Route: 042
     Dates: start: 20170314, end: 20170314
  58. DEXAMETHASONE. [Concomitant]
     Active Substance: DEXAMETHASONE
     Indication: PROPHYLAXIS OF NAUSEA AND VOMITING
     Dosage: 2 MG, BID
     Route: 048
     Dates: start: 20170314, end: 20170317
  59. DEXAMETHASONE. [Concomitant]
     Active Substance: DEXAMETHASONE
     Dosage: 2 MG, BID
     Route: 048
     Dates: start: 20170406, end: 20170408
  60. DEXAMETHASONE. [Concomitant]
     Active Substance: DEXAMETHASONE
     Dosage: 2 MG, BID
     Route: 048
     Dates: start: 20170427, end: 20170429
  61. ALOXI [Concomitant]
     Active Substance: PALONOSETRON HYDROCHLORIDE
     Dosage: 0.25 MG, ONCE
     Route: 042
     Dates: start: 20170426, end: 20170426
  62. ACTINAMIDE [Concomitant]
     Indication: PROPHYLAXIS
     Dosage: 1 MG, ONCE; STRENGTH: 1000MCG/2ML
     Route: 030
     Dates: start: 20170517, end: 20170517
  63. MANNITOL. [Concomitant]
     Active Substance: MANNITOL
     Dosage: 100 ML, ONCE; 100 ML (BAG)
     Route: 042
     Dates: start: 20170426, end: 20170426

REACTIONS (4)
  - Constipation [Recovered/Resolved]
  - Pulmonary embolism [Recovered/Resolved]
  - Liver function test increased [Recovered/Resolved]
  - Thrombocytopenia [Recovered/Resolved]

NARRATIVE: CASE EVENT DATE: 20170314
